FAERS Safety Report 6661235-0 (Version None)
Quarter: 2010Q1

REPORT INFORMATION
  Report Type: 
  Country: None (occurrence: None)
  Receive Date: 20100331
  Receipt Date: 20100323
  Transmission Date: 20100710
  Serious: Yes (Hospitalization)
  Sender: FDA-Public Use
  Company Number: JP-ROCHE-693786

PATIENT
  Sex: Female
  Weight: 65.5 kg

DRUGS (12)
  1. PEGINTERFERON ALFA-2A [Suspect]
     Indication: HEPATITIS C
     Route: 058
     Dates: start: 20070101, end: 20070601
  2. PEGINTERFERON ALFA-2A [Suspect]
     Dosage: DOSE DECREASED
     Route: 058
     Dates: start: 20080512, end: 20080812
  3. PEGINTERFERON ALFA-2A [Suspect]
     Dosage: DISCONTINUED
     Route: 058
     Dates: start: 20080819, end: 20081118
  4. RIBAVIRIN [Suspect]
     Indication: HEPATITIS C
     Route: 048
     Dates: start: 20070101, end: 20070601
  5. RIBAVIRIN [Suspect]
     Route: 048
     Dates: start: 20080512, end: 20080818
  6. FAMOTIDINE [Concomitant]
     Route: 048
     Dates: start: 20060411, end: 20081125
  7. URSO 250 [Concomitant]
     Route: 048
     Dates: start: 20060411
  8. GLYCYRON [Concomitant]
     Route: 048
     Dates: start: 20080118, end: 20081125
  9. LOXONIN [Concomitant]
     Route: 048
     Dates: start: 20070119, end: 20081118
  10. FLURBIPROFEN [Concomitant]
     Dosage: SINGLE USE
     Route: 061
     Dates: start: 20060606, end: 20081101
  11. FLURBIPROFEN [Concomitant]
     Dosage: SINGLE USE
     Route: 061
     Dates: start: 20081224
  12. DIOVAN [Concomitant]
     Route: 048
     Dates: start: 20050411, end: 20070107

REACTIONS (5)
  - AUTOIMMUNE HEPATITIS [None]
  - HAEMOGLOBIN DECREASED [None]
  - HEPATIC FAILURE [None]
  - NEUTROPHIL COUNT DECREASED [None]
  - PLATELET COUNT DECREASED [None]
